FAERS Safety Report 24940872 (Version 1)
Quarter: 2025Q1

REPORT INFORMATION
  Report Type: Spontaneous
  Country: IT (occurrence: IT)
  Receive Date: 20250207
  Receipt Date: 20250207
  Transmission Date: 20250409
  Serious: Yes (Other)
  Sender: MSN LABORATORIES PRIVATE LIMITED
  Company Number: IT-MSNLABS-2025MSNLIT00313

PATIENT

DRUGS (19)
  1. CLOBAZAM [Suspect]
     Active Substance: CLOBAZAM
     Indication: Lennox-Gastaut syndrome
     Dosage: 30 MG/DIE
     Route: 065
  2. CLOBAZAM [Suspect]
     Active Substance: CLOBAZAM
     Indication: Seizure
     Dosage: 20 MG/DIE
     Route: 065
  3. CENOBAMATE [Suspect]
     Active Substance: CENOBAMATE
     Indication: Seizure
     Dosage: DAILY TARGET DOSE OF 200 MG
     Route: 065
  4. CENOBAMATE [Suspect]
     Active Substance: CENOBAMATE
     Route: 065
  5. CENOBAMATE [Suspect]
     Active Substance: CENOBAMATE
     Dosage: GRADUALLY REDUCED TO 12.5 MG/DAY
     Route: 065
  6. CENOBAMATE [Suspect]
     Active Substance: CENOBAMATE
     Dosage: 150 MG/DIE OVER 20 WEEKS
     Route: 065
  7. CARBAMAZEPINE [Concomitant]
     Active Substance: CARBAMAZEPINE
     Indication: Seizure
     Route: 065
  8. TOPIRAMATE [Concomitant]
     Active Substance: TOPIRAMATE
     Indication: Seizure
     Route: 065
  9. FELBAMATE [Concomitant]
     Active Substance: FELBAMATE
     Indication: Seizure
     Route: 065
  10. LAMOTRIGINE [Concomitant]
     Active Substance: LAMOTRIGINE
     Indication: Seizure
     Dosage: 175 MG/DIE
     Route: 065
  11. LAMOTRIGINE [Concomitant]
     Active Substance: LAMOTRIGINE
     Dosage: 150 MG/DIE
     Route: 065
  12. CLONAZEPAM [Concomitant]
     Active Substance: CLONAZEPAM
     Indication: Seizure
     Route: 065
  13. RUFINAMIDE [Concomitant]
     Active Substance: RUFINAMIDE
     Indication: Seizure
     Route: 065
  14. ACETAZOLAMIDE [Concomitant]
     Active Substance: ACETAZOLAMIDE
     Indication: Seizure
     Route: 065
  15. ETHOSUXIMIDE [Concomitant]
     Active Substance: ETHOSUXIMIDE
     Indication: Seizure
     Route: 065
  16. ZONISAMIDE [Concomitant]
     Active Substance: ZONISAMIDE
     Indication: Seizure
     Route: 065
  17. PERAMPANEL [Concomitant]
     Active Substance: PERAMPANEL
     Indication: Seizure
     Route: 065
  18. VALPROIC ACID [Concomitant]
     Active Substance: VALPROIC ACID
     Indication: Seizure
     Dosage: 1800 MG/DIE
     Route: 065
  19. VALPROIC ACID [Concomitant]
     Active Substance: VALPROIC ACID
     Dosage: 600 MG/DAY
     Route: 065

REACTIONS (4)
  - Drug interaction [Unknown]
  - Somnolence [Unknown]
  - Brain fog [Unknown]
  - Disorientation [Unknown]
